FAERS Safety Report 5451072-7 (Version None)
Quarter: 2007Q3

REPORT INFORMATION
  Report Type: 
  Country: None (occurrence: None)
  Receive Date: 20070911
  Receipt Date: 20070827
  Transmission Date: 20080115
  Serious: Yes (Life-Threatening)
  Sender: FDA-Public Use
  Company Number: 2007-02872

PATIENT
  Age: 58 Year
  Sex: Male
  Weight: 69 kg

DRUGS (13)
  1. VELCADE [Suspect]
     Dosage: 2.2 MG, INTRAVENOUS
     Route: 042
     Dates: start: 20070703, end: 20070727
  2. PENFILL R (INSULIN HUMAN) [Concomitant]
  3. LORAZEPAM [Concomitant]
  4. TASMOLIN (BIPERIDEN) [Concomitant]
  5. LULLAN/ JPN/ (PEROSPIRONE HYDROCHLORIDE) [Concomitant]
  6. LIMAS (LITHIUM CARBONATE) [Concomitant]
  7. NITRAZEPAM [Concomitant]
  8. RHYTHMY (RILMAZAFONE) [Concomitant]
  9. ALOSENN (TARAXACUM OFFICINALE, ACHILLEA, SENNA LEAF, RUBIA ROOT TINCTU [Concomitant]
  10. OMEPRAL (OMEPRAZOLE) [Concomitant]
  11. BAKTAR (SULFAMETHOXAZOLE, TRIMETHOPRIM) [Concomitant]
  12. ALLOPURINOL [Concomitant]
  13. MAGNESIUM OXIDE (MAGNESIUM OXIDE) [Concomitant]

REACTIONS (9)
  - ALANINE AMINOTRANSFERASE INCREASED [None]
  - ANAEMIA [None]
  - C-REACTIVE PROTEIN INCREASED [None]
  - CONSTIPATION [None]
  - HYPERGLYCAEMIA [None]
  - PLATELET COUNT DECREASED [None]
  - ROAD TRAFFIC ACCIDENT [None]
  - VARICELLA [None]
  - WEIGHT INCREASED [None]
